FAERS Safety Report 7290908-4 (Version None)
Quarter: 2011Q1

REPORT INFORMATION
  Report Type: 
  Country: None (occurrence: None)
  Receive Date: 20110214
  Receipt Date: 20110208
  Transmission Date: 20110831
  Serious: Yes (Other)
  Sender: FDA-Public Use
  Company Number: US-JNJFOC-20100502502

PATIENT
  Sex: Female

DRUGS (1)
  1. LEVAQUIN [Suspect]
     Indication: BRONCHITIS
     Route: 048

REACTIONS (20)
  - LIGAMENT RUPTURE [None]
  - DIZZINESS [None]
  - PYREXIA [None]
  - ROTATOR CUFF SYNDROME [None]
  - HEADACHE [None]
  - VOMITING [None]
  - ALANINE AMINOTRANSFERASE INCREASED [None]
  - ACUTE SINUSITIS [None]
  - JOINT RANGE OF MOTION DECREASED [None]
  - EAR PAIN [None]
  - ABDOMINAL PAIN [None]
  - MUSCLE STRAIN [None]
  - ASPARTATE AMINOTRANSFERASE INCREASED [None]
  - HEPATIC ENZYME INCREASED [None]
  - MUSCULOSKELETAL PAIN [None]
  - FATIGUE [None]
  - NAUSEA [None]
  - CYTOMEGALOVIRUS INFECTION [None]
  - MIDDLE INSOMNIA [None]
  - EPSTEIN-BARR VIRUS INFECTION [None]
